FAERS Safety Report 12890471 (Version 1)
Quarter: 2016Q4

REPORT INFORMATION
  Report Type: Spontaneous
  Country: US (occurrence: US)
  Receive Date: 20161027
  Receipt Date: 20161027
  Transmission Date: 20170207
  Serious: No
  Sender: FDA-Public Use
  Company Number: US-DSJP-DSU-2016-128142

PATIENT
  Age: 75 Year
  Sex: Male

DRUGS (1)
  1. SAVAYSA [Suspect]
     Active Substance: EDOXABAN TOSYLATE
     Indication: ATRIAL FIBRILLATION
     Dosage: UNK

REACTIONS (5)
  - Muscle fatigue [Recovering/Resolving]
  - Abnormal loss of weight [Recovering/Resolving]
  - Rheumatoid arthritis [Unknown]
  - Unevaluable event [Recovering/Resolving]
  - Haematuria [Recovering/Resolving]
